FAERS Safety Report 5492486-9 (Version None)
Quarter: 2007Q4

REPORT INFORMATION
  Report Type: 
  Country: None (occurrence: None)
  Receive Date: 20071015
  Receipt Date: 20070725
  Transmission Date: 20080405
  Serious: No
  Sender: FDA-Public Use
  Company Number: 2007SP002648

PATIENT
  Age: 64 Year
  Sex: Female
  Weight: 74.8435 kg

DRUGS (4)
  1. LUNESTA [Suspect]
     Indication: INSOMNIA
     Dosage: 3 MG ORAL
     Route: 048
     Dates: start: 20070724
  2. PREMPRO [Concomitant]
  3. CYMBALTA [Concomitant]
  4. PERCOCET [Concomitant]

REACTIONS (1)
  - DYSGEUSIA [None]
